FAERS Safety Report 11610840 (Version 1)
Quarter: 2015Q4

REPORT INFORMATION
  Report Type: Spontaneous
  Country: US (occurrence: None)
  Receive Date: 20151007
  Receipt Date: 20151007
  Transmission Date: 20160304
  Serious: Yes (Other)
  Sender: FDA-Public Use
  Company Number: None

PATIENT
  Age: 48 Year
  Sex: Female

DRUGS (1)
  1. COPAXONE [Suspect]
     Active Substance: GLATIRAMER ACETATE
     Indication: MULTIPLE SCLEROSIS
     Dosage: ONE SYRINGE
     Route: 058
     Dates: start: 20150709, end: 20150930

REACTIONS (5)
  - Injection site swelling [None]
  - Injection site warmth [None]
  - Injection site urticaria [None]
  - Injection site erythema [None]
  - Injection site bruising [None]

NARRATIVE: CASE EVENT DATE: 20150930
